FAERS Safety Report 21929805 (Version 4)
Quarter: 2023Q2

REPORT INFORMATION
  Report Type: Report from Study
  Country: CA (occurrence: CA)
  Receive Date: 20230131
  Receipt Date: 20230414
  Transmission Date: 20230722
  Serious: Yes (Other)
  Sender: FDA-Public Use
  Company Number: CA-JNJFOC-20221219477

PATIENT
  Age: 14 Year
  Sex: Male
  Weight: 54 kg

DRUGS (3)
  1. REMICADE [Suspect]
     Active Substance: INFLIXIMAB
     Indication: Crohn^s disease
     Dosage: PRESCRIBED 5 MG/KG AT 0,2,6 THEN EVERY 6 WEEK.
     Route: 042
     Dates: start: 20221214
  2. REMICADE [Suspect]
     Active Substance: INFLIXIMAB
     Route: 042
  3. REMICADE [Suspect]
     Active Substance: INFLIXIMAB
     Dosage: DOSE INCREASED
     Route: 042

REACTIONS (6)
  - Crohn^s disease [Recovered/Resolved]
  - Abscess [Unknown]
  - Skin infection [Unknown]
  - Hepatic enzyme increased [Unknown]
  - SARS-CoV-2 test positive [Recovering/Resolving]
  - Off label use [Unknown]

NARRATIVE: CASE EVENT DATE: 20221214
